FAERS Safety Report 24381919 (Version 1)
Quarter: 2024Q4

REPORT INFORMATION
  Report Type: Report from Study
  Country: US (occurrence: US)
  Receive Date: 20241001
  Receipt Date: 20241001
  Transmission Date: 20250114
  Serious: Yes (Hospitalization, Other)
  Sender: ROCHE
  Company Number: US-ROCHE-10000088154

PATIENT
  Age: 65 Year
  Sex: Female
  Weight: 43.09 kg

DRUGS (5)
  1. OCREVUS [Suspect]
     Active Substance: OCRELIZUMAB
     Indication: Relapsing-remitting multiple sclerosis
     Route: 042
  2. LYRICA [Concomitant]
     Active Substance: PREGABALIN
     Route: 048
     Dates: start: 2024
  3. FORTEO [Concomitant]
     Active Substance: TERIPARATIDE
     Indication: Osteoarthritis
     Route: 058
  4. HIZENTRA [Concomitant]
     Active Substance: HUMAN IMMUNOGLOBULIN G
     Indication: Primary immunodeficiency syndrome
     Route: 058
  5. LISINOPRIL [Concomitant]
     Active Substance: LISINOPRIL
     Indication: Blood potassium decreased
     Route: 048
     Dates: start: 2002

REACTIONS (10)
  - Sepsis [Recovered/Resolved]
  - Pancreatitis [Not Recovered/Not Resolved]
  - Pelvic fracture [Recovering/Resolving]
  - Osteoarthritis [Not Recovered/Not Resolved]
  - Cerebrovascular accident [Recovered/Resolved]
  - Arteriosclerosis [Not Recovered/Not Resolved]
  - Progressive multiple sclerosis [Unknown]
  - Small intestinal perforation [Unknown]
  - Hypertension [Unknown]
  - Fractured sacrum [Recovering/Resolving]

NARRATIVE: CASE EVENT DATE: 20020101
